FAERS Safety Report 4365739-5 (Version None)
Quarter: 2004Q2

REPORT INFORMATION
  Report Type: 
  Country: None (occurrence: None)
  Receive Date: 20040520
  Receipt Date: 20040510
  Transmission Date: 20050107
  Serious: Yes (Disabling)
  Sender: FDA-Public Use
  Company Number: 04P-167-0260292-00

PATIENT
  Age: 35 Year
  Sex: Female
  Weight: 107 kg

DRUGS (2)
  1. MERIDIA [Suspect]
     Indication: OBESITY
     Dosage: 10 MG, 1 IN 1 D, PER ORAL
     Route: 048
     Dates: start: 20040413, end: 20040422
  2. METFORMIN [Concomitant]

REACTIONS (3)
  - AGGRESSION [None]
  - AGITATION [None]
  - PERSONALITY CHANGE [None]
